FAERS Safety Report 21308787 (Version 1)
Quarter: 2022Q3

REPORT INFORMATION
  Report Type: Spontaneous
  Country: US (occurrence: None)
  Receive Date: 20220908
  Receipt Date: 20220908
  Transmission Date: 20221027
  Serious: Yes (Other)
  Sender: FDA-Public Use
  Company Number: None

PATIENT
  Age: 42 Year
  Sex: Female
  Weight: 54 kg

DRUGS (5)
  1. BOTOX [Suspect]
     Active Substance: ONABOTULINUMTOXINA
     Indication: Migraine
     Dates: start: 20191017, end: 20220203
  2. FROVATRIPTAN [Concomitant]
     Active Substance: FROVATRIPTAN
  3. RIZATRIPTAN [Concomitant]
     Active Substance: RIZATRIPTAN
  4. SPIRONOLACTONE [Concomitant]
     Active Substance: SPIRONOLACTONE
  5. ADEMETIONINE [Concomitant]
     Active Substance: ADEMETIONINE

REACTIONS (2)
  - Androgenetic alopecia [None]
  - Therapy interrupted [None]
